FAERS Safety Report 12214814 (Version 1)
Quarter: 2016Q1

REPORT INFORMATION
  Report Type: Spontaneous
  Country: AU (occurrence: AU)
  Receive Date: 20160328
  Receipt Date: 20160328
  Transmission Date: 20160526
  Serious: Yes (Other)
  Sender: FDA-Public Use
  Company Number: AU-JNJFOC-20160209444

PATIENT
  Age: 32 Year
  Sex: Female
  Weight: 40 kg

DRUGS (1)
  1. STELARA [Suspect]
     Active Substance: USTEKINUMAB
     Indication: PRODUCT USED FOR UNKNOWN INDICATION
     Route: 058
     Dates: start: 201507

REACTIONS (2)
  - Hallucination [Unknown]
  - Stress [Unknown]

NARRATIVE: CASE EVENT DATE: 201512
